FAERS Safety Report 15830511 (Version 1)
Quarter: 2019Q1

REPORT INFORMATION
  Report Type: Spontaneous
  Country: US (occurrence: US)
  Receive Date: 20190115
  Receipt Date: 20190115
  Transmission Date: 20190417
  Serious: Yes (Death, Other)
  Sender: FDA-Public Use
  Company Number: PHEH2019US002144

PATIENT
  Age: 66 Year
  Sex: Male
  Weight: 79.38 kg

DRUGS (3)
  1. TAFINLAR [Suspect]
     Active Substance: DABRAFENIB MESYLATE
     Indication: MALIGNANT MELANOMA
     Dosage: UNK
     Route: 065
     Dates: start: 201703
  2. MEKINIST [Suspect]
     Active Substance: TRAMETINIB DIMETHYL SULFOXIDE
     Indication: MALIGNANT MELANOMA
     Dosage: 2 MG, QD
     Route: 048
     Dates: start: 201703
  3. DEXAMETASON [Concomitant]
     Active Substance: DEXAMETHASONE
     Indication: BRAIN OEDEMA
     Dosage: UNK
     Route: 065
     Dates: start: 201808, end: 20180901

REACTIONS (4)
  - Seizure [Recovered/Resolved]
  - Cerebrovascular accident [Unknown]
  - Metastases to liver [Fatal]
  - Paralysis [Recovered/Resolved]

NARRATIVE: CASE EVENT DATE: 20181027
